FAERS Safety Report 10101387 (Version 1)
Quarter: 2014Q2

REPORT INFORMATION
  Report Type: Spontaneous
  Country: US (occurrence: US)
  Receive Date: 20140424
  Receipt Date: 20140424
  Transmission Date: 20141212
  Serious: No
  Sender: FDA-Public Use
  Company Number: US-PFIZER INC-2014111311

PATIENT
  Sex: Male

DRUGS (2)
  1. ADVIL [Suspect]
     Indication: BACK PAIN
     Dosage: UNK
  2. NORCO [Suspect]
     Indication: BACK PAIN
     Dosage: UNK

REACTIONS (1)
  - Gastric disorder [Unknown]
